FAERS Safety Report 14366863 (Version 2)
Quarter: 2018Q1

REPORT INFORMATION
  Report Type: Spontaneous
  Country: US (occurrence: US)
  Receive Date: 20180109
  Receipt Date: 20180116
  Transmission Date: 20180509
  Serious: Yes (Other)
  Sender: FDA-Public Use
  Company Number: US-PFIZER INC-2018007504

PATIENT
  Age: 27 Year
  Sex: Female

DRUGS (6)
  1. BUPIVACAINE HCL [Suspect]
     Active Substance: BUPIVACAINE HYDROCHLORIDE
     Indication: EPIDURAL ANALGESIA
     Dosage: 1.1 ML, UNK
     Route: 037
  2. BUPIVACAINE HCL [Suspect]
     Active Substance: BUPIVACAINE HYDROCHLORIDE
     Indication: LABOUR PAIN
  3. SUFENTANIL CITRATE. [Suspect]
     Active Substance: SUFENTANIL CITRATE
     Indication: EPIDURAL ANALGESIA
     Dosage: 1.1 ML, UNK
     Route: 037
  4. BUPIVACAINE HCL [Suspect]
     Active Substance: BUPIVACAINE HYDROCHLORIDE
     Indication: EPIDURAL ANALGESIA
     Dosage: 9 ML, AS NEEDED (9 ML, AS NEEDED(EVERY 45 MINUTES EPIDURAL ANALGESIA BOLUSES OF 10 ML EVERY 10 MIN))
     Route: 008
  5. BUPIVACAINE HCL [Suspect]
     Active Substance: BUPIVACAINE HYDROCHLORIDE
     Indication: LABOUR PAIN
  6. SUFENTANIL CITRATE. [Suspect]
     Active Substance: SUFENTANIL CITRATE
     Indication: LABOUR PAIN
     Dosage: 0.4 UG/ML, AS NEEDED(EVERY 45 MINUTES WITH EPIDURAL ANALGESIA BOLUSES OF 10 ML EVERY 10 MINUTES)
     Route: 008

REACTIONS (5)
  - Dyspnoea [Recovered/Resolved]
  - Nausea [Recovered/Resolved]
  - Mobility decreased [Recovered/Resolved]
  - Hypotension [Recovered/Resolved]
  - Anaesthetic complication [Recovered/Resolved]
